FAERS Safety Report 5448810-6 (Version None)
Quarter: 2007Q3

REPORT INFORMATION
  Report Type: 
  Country: None (occurrence: None)
  Receive Date: 20070911
  Receipt Date: 20070625
  Transmission Date: 20080115
  Serious: No
  Sender: FDA-Public Use
  Company Number: US-BRISTOL-MYERS SQUIBB COMPANY-13824917

PATIENT
  Weight: 60 kg

DRUGS (6)
  1. EMSAM [Suspect]
     Indication: DEPRESSION
     Route: 062
  2. ESTRADIOL [Concomitant]
  3. TEMAZEPAM [Concomitant]
  4. LAMICTAL [Concomitant]
  5. PROPRANOLOL HCL [Concomitant]
  6. ALEVE [Concomitant]

REACTIONS (1)
  - ARTHRALGIA [None]
